FAERS Safety Report 19067860 (Version 1)
Quarter: 2021Q1

REPORT INFORMATION
  Report Type: Spontaneous
  Country: US (occurrence: US)
  Receive Date: 20210326
  Receipt Date: 20210326
  Transmission Date: 20210420
  Serious: No
  Sender: FDA-Public Use
  Company Number: None

PATIENT
  Sex: Female
  Weight: 76.5 kg

DRUGS (4)
  1. INOSITOL [Concomitant]
     Active Substance: INOSITOL
  2. BUPROPION. [Concomitant]
     Active Substance: BUPROPION
  3. BUSPAR [Concomitant]
     Active Substance: BUSPIRONE HYDROCHLORIDE
  4. SERTRALINE [Suspect]
     Active Substance: SERTRALINE HYDROCHLORIDE
     Indication: DEPRESSION
     Dates: start: 20180901, end: 20190630

REACTIONS (3)
  - Disturbance in sexual arousal [None]
  - Mental disorder [None]
  - Sexual dysfunction [None]
